FAERS Safety Report 17104300 (Version 1)
Quarter: 2019Q4

REPORT INFORMATION
  Report Type: Spontaneous
  Country: US (occurrence: US)
  Receive Date: 20191203
  Receipt Date: 20191203
  Transmission Date: 20200122
  Serious: No
  Sender: FDA-Public Use
  Company Number: US-UCBSA-2017048686

PATIENT
  Sex: Male

DRUGS (3)
  1. BRIVIACT [Suspect]
     Active Substance: BRIVARACETAM
     Indication: GENERALISED TONIC-CLONIC SEIZURE
     Dosage: 50 MG, ONCE DAILY (QD)
     Dates: start: 20171002
  2. BRIVIACT [Suspect]
     Active Substance: BRIVARACETAM
     Indication: FOCAL DYSCOGNITIVE SEIZURES
  3. BRIVIACT [Suspect]
     Active Substance: BRIVARACETAM
     Indication: SIMPLE PARTIAL SEIZURES

REACTIONS (1)
  - No adverse event [Unknown]
